FAERS Safety Report 13562743 (Version 1)
Quarter: 2017Q2

REPORT INFORMATION
  Report Type: Spontaneous
  Country: US (occurrence: US)
  Receive Date: 20170518
  Receipt Date: 20170518
  Transmission Date: 20170830
  Serious: No
  Sender: FDA-Public Use
  Company Number: None

PATIENT
  Age: 53 Year
  Sex: Female
  Weight: 71.73 kg

DRUGS (3)
  1. AMLODIPINE BESYLATE. [Concomitant]
     Active Substance: AMLODIPINE BESYLATE
  2. CABERGOLINE. [Concomitant]
     Active Substance: CABERGOLINE
  3. DICLOFENAC SODIUM. [Suspect]
     Active Substance: DICLOFENAC SODIUM
     Indication: NEURALGIA
     Dosage: 1% PER GRAM 2 GRAMS 3 TIMES DAILY ON THE SKIN
     Route: 061
     Dates: start: 20170313, end: 20170407

REACTIONS (1)
  - Thermal burn [None]

NARRATIVE: CASE EVENT DATE: 20170407
